FAERS Safety Report 11434535 (Version 1)
Quarter: 2015Q3

REPORT INFORMATION
  Report Type: Spontaneous
  Country: PL (occurrence: PL)
  Receive Date: 20150831
  Receipt Date: 20150831
  Transmission Date: 20151125
  Serious: Yes (Other)
  Sender: FDA-Public Use
  Company Number: PL-JNJFOC-20150818857

PATIENT
  Age: 56 Year
  Sex: Male

DRUGS (1)
  1. INFLIXIMAB, RECOMBINANT [Suspect]
     Active Substance: INFLIXIMAB
     Indication: ANKYLOSING SPONDYLITIS
     Route: 042
     Dates: start: 2011

REACTIONS (2)
  - Pulmonary tuberculosis [Recovering/Resolving]
  - Spleen tuberculosis [Recovering/Resolving]

NARRATIVE: CASE EVENT DATE: 2011
